FAERS Safety Report 8314487-5 (Version None)
Quarter: 2012Q2

REPORT INFORMATION
  Report Type: 
  Country: None (occurrence: None)
  Receive Date: 20120426
  Receipt Date: 20120418
  Transmission Date: 20120825
  Serious: Yes (Hospitalization)
  Sender: FDA-Public Use
  Company Number: US-ACTELION-A-NJ2012-63300

PATIENT

DRUGS (11)
  1. VENTAVIS [Concomitant]
     Indication: PULMONARY ARTERIAL HYPERTENSION
  2. COUMADIN [Concomitant]
  3. METOPROLOL TARTRATE [Concomitant]
  4. OXYGEN [Concomitant]
  5. TRACLEER [Suspect]
     Indication: PULMONARY ARTERIAL HYPERTENSION
     Dosage: UNK
     Route: 048
     Dates: start: 20090327
  6. HYDROXYCHLOROQUINE SULFATE [Concomitant]
  7. IRON [Concomitant]
  8. MULTI-VITAMIN [Concomitant]
  9. PROTONIX [Concomitant]
  10. LASIX [Concomitant]
  11. ISORBIDE [Concomitant]

REACTIONS (2)
  - CANDIDA PNEUMONIA [None]
  - DYSPNOEA [None]
